FAERS Safety Report 19722043 (Version 1)
Quarter: 2021Q3

REPORT INFORMATION
  Report Type: Report from Study
  Country: US (occurrence: US)
  Receive Date: 20210818
  Receipt Date: 20210818
  Transmission Date: 20211014
  Serious: No
  Sender: FDA-Public Use
  Company Number: NVSC2021US184794

PATIENT
  Age: 50 Year
  Sex: Female

DRUGS (1)
  1. COSENTYX [Suspect]
     Active Substance: SECUKINUMAB
     Indication: PSORIATIC ARTHROPATHY
     Dosage: UNK, QMO
     Route: 058

REACTIONS (5)
  - Device use error [Recovered/Resolved]
  - Arthralgia [Unknown]
  - Skin exfoliation [Recovering/Resolving]
  - Pain in extremity [Unknown]
  - Injection site haemorrhage [Recovered/Resolved]

NARRATIVE: CASE EVENT DATE: 202103
